FAERS Safety Report 9471649 (Version 2)
Quarter: 2013Q3

REPORT INFORMATION
  Report Type: Spontaneous
  Country: US (occurrence: US)
  Receive Date: 20130822
  Receipt Date: 20130822
  Transmission Date: 20140515
  Serious: Yes (Death)
  Sender: FDA-Public Use
  Company Number: US-BAXTER-2013BAX031920

PATIENT
  Age: 73 Year
  Sex: Female

DRUGS (1)
  1. DIANEAL PD2 [Suspect]
     Indication: PERITONEAL DIALYSIS
     Route: 033
     Dates: end: 20130719

REACTIONS (4)
  - Renal failure [Fatal]
  - Localised infection [Fatal]
  - Septic shock [Fatal]
  - Cardiac arrest [Fatal]
